FAERS Safety Report 7413856-5 (Version None)
Quarter: 2011Q2

REPORT INFORMATION
  Report Type: 
  Country: None (occurrence: None)
  Receive Date: 20110413
  Receipt Date: 20110331
  Transmission Date: 20111010
  Serious: Yes (Life-Threatening)
  Sender: FDA-Public Use
  Company Number: JP-MYLANLABS-2011S1006885

PATIENT
  Age: 0 Year
  Sex: Female
  Weight: 2.12 kg

DRUGS (3)
  1. SEVOFLURANE [Suspect]
     Route: 064
  2. NITROGLYCERIN [Suspect]
     Route: 064
  3. ULTIVA [Suspect]
     Route: 064

REACTIONS (4)
  - FOETAL HEART RATE DECREASED [None]
  - PREMATURE BABY [None]
  - MATERNAL DRUGS AFFECTING FOETUS [None]
  - DRUG EXPOSURE DURING PREGNANCY [None]
